FAERS Safety Report 8328331-3 (Version None)
Quarter: 2012Q2

REPORT INFORMATION
  Report Type: 
  Country: None (occurrence: None)
  Receive Date: 20120424
  Receipt Date: 20120418
  Transmission Date: 20120825
  Serious: Yes (Hospitalization)
  Sender: FDA-Public Use
  Company Number: 2012031131

PATIENT
  Age: 53 Year
  Sex: Female
  Weight: 83.4619 kg

DRUGS (28)
  1. LOVAZA (FISH OIL) [Concomitant]
  2. VITAMIN B 12 INJECTION (CYANOCOBALAMIN) [Concomitant]
  3. ISOSORBIDE (ISOSORBIDE) [Concomitant]
  4. ACETAMINOPHEN [Concomitant]
  5. ABILIFY [Concomitant]
  6. NEXIUM [Concomitant]
  7. ULTRAM [Concomitant]
  8. DOXYCYCLINE [Concomitant]
  9. CYMBALTA [Concomitant]
  10. BYSTOLIC (NEVIVOLOL) [Concomitant]
  11. HIZENTRA [Suspect]
  12. TEMAZEPAM [Concomitant]
  13. HIZENTRA [Suspect]
  14. ALBUTEROL [Concomitant]
  15. LEVAQUIN [Concomitant]
  16. SINGULAIR [Suspect]
  17. TORSEMIDE [Concomitant]
  18. VITAMIN D [Concomitant]
  19. HIZENTRA [Suspect]
     Indication: HYPOGLOBULINAEMIA
     Dosage: SEE IMAGE, SUBCUTANEOUS
     Route: 058
     Dates: start: 20120206, end: 20120206
  20. HIZENTRA [Suspect]
     Indication: HYPOGLOBULINAEMIA
     Dosage: SEE IMAGE, SUBCUTANEOUS
     Route: 058
     Dates: start: 20120417
  21. HIZENTRA [Suspect]
     Indication: HYPOGLOBULINAEMIA
     Dosage: SEE IMAGE, SUBCUTANEOUS
     Route: 058
     Dates: start: 20120127, end: 20120127
  22. HIZENTRA [Suspect]
     Indication: HYPOGLOBULINAEMIA
     Dosage: SEE IMAGE, SUBCUTANEOUS
     Route: 058
     Dates: start: 20120306, end: 20120306
  23. HIZENTRA [Suspect]
     Indication: HYPOGLOBULINAEMIA
     Dosage: SEE IMAGE, SUBCUTANEOUS
     Route: 058
     Dates: start: 20111230
  24. HIZENTRA [Suspect]
     Indication: HYPOGLOBULINAEMIA
     Dosage: SEE IMAGE, SUBCUTANEOUS
     Route: 058
     Dates: start: 20120109, end: 20120109
  25. HIZENTRA [Suspect]
     Indication: HYPOGLOBULINAEMIA
     Dosage: SEE IMAGE, SUBCUTANEOUS
     Route: 058
     Dates: start: 20120106
  26. IPRAT-ALBUT (COMBIVENT) [Concomitant]
  27. VALIUM [Concomitant]
  28. LAMICTAL XR (LAMOTRIGINE) [Concomitant]

REACTIONS (7)
  - CHILLS [None]
  - INFUSION SITE PAIN [None]
  - INFUSION SITE ERYTHEMA [None]
  - MYOCARDIAL INFARCTION [None]
  - INFUSION SITE OEDEMA [None]
  - DIZZINESS [None]
  - HOT FLUSH [None]
